FAERS Safety Report 5079701-0 (Version None)
Quarter: 2006Q3

REPORT INFORMATION
  Report Type: 
  Country: None (occurrence: None)
  Receive Date: 20060808
  Receipt Date: 20060724
  Transmission Date: 20061208
  Serious: No
  Sender: FDA-Public Use
  Company Number: US200606000700

PATIENT
  Age: 79 Year
  Sex: Female

DRUGS (5)
  1. FORTEO [Suspect]
     Indication: OSTEOPOROSIS
     Dosage: 20 UG, DAILY (1/D)
     Dates: start: 20050109
  2. FORTEO [Concomitant]
  3. CELEBREX [Concomitant]
  4. ACETAMINOPHEN [Concomitant]
  5. OSTEO BI-FLEX (CHONDROITIN SULFATE, GLUCOSAMINE HYDROCHLORIDE) [Concomitant]

REACTIONS (4)
  - ASTHENIA [None]
  - EMPHYSEMA [None]
  - LUNG DISORDER [None]
  - TACHYCARDIA [None]
